FAERS Safety Report 9611503 (Version 2)
Quarter: 2013Q4

REPORT INFORMATION
  Report Type: Spontaneous
  Country: DE (occurrence: DE)
  Receive Date: 20131010
  Receipt Date: 20131220
  Transmission Date: 20140711
  Serious: Yes (Death, Hospitalization)
  Sender: FDA-Public Use
  Company Number: DE-ROCHE-1284182

PATIENT
  Age: 48 Year
  Sex: Female

DRUGS (6)
  1. ROACTEMRA [Suspect]
     Indication: RHEUMATOID ARTHRITIS
     Route: 042
     Dates: start: 20130717
  2. SUPRARENIN [Concomitant]
     Dosage: 3MG/50ML NACL, MAX 20 ML/H
     Route: 041
     Dates: start: 20130719
  3. ARTERENOL [Concomitant]
     Dosage: 3MG/50ML NACL, MAX 20 ML/H
     Route: 041
     Dates: start: 20130719
  4. PANTOZOL (GERMANY) [Concomitant]
     Route: 042
     Dates: start: 20130719
  5. SUFENTANIL [Concomitant]
     Dosage: 20 MCG/H
     Route: 041
     Dates: start: 20130719
  6. TAZOBAC [Concomitant]
     Route: 042
     Dates: start: 20130719

REACTIONS (15)
  - Aortic dissection [Fatal]
  - Shock [Fatal]
  - Pain in extremity [Unknown]
  - Spinal pain [Unknown]
  - Acute respiratory failure [Fatal]
  - Bronchopneumonia [Fatal]
  - Cardiogenic shock [Fatal]
  - Circulatory collapse [Fatal]
  - Diarrhoea [Unknown]
  - Cardiac failure [Fatal]
  - Pulmonary embolism [Unknown]
  - Respiratory failure [Fatal]
  - Diffuse alveolar damage [Fatal]
  - Severe acute respiratory syndrome [Unknown]
  - Paraesthesia [Unknown]
